FAERS Safety Report 14351882 (Version 1)
Quarter: 2018Q1

REPORT INFORMATION
  Report Type: Report from Study
  Country: AR (occurrence: AR)
  Receive Date: 20180104
  Receipt Date: 20180104
  Transmission Date: 20180509
  Serious: Yes (Hospitalization)
  Sender: FDA-Public Use
  Company Number: AR-SHIRE-AR201735681

PATIENT

DRUGS (5)
  1. FLUTICASONE. [Concomitant]
     Active Substance: FLUTICASONE
     Indication: PRODUCT USED FOR UNKNOWN INDICATION
  2. IDURSULFASE [Suspect]
     Active Substance: IDURSULFASE
     Indication: MUCOPOLYSACCHARIDOSIS II
     Route: 065
  3. CIPROFLOXACIN. [Concomitant]
     Active Substance: CIPROFLOXACIN
     Indication: OTITIS MEDIA ACUTE
  4. CEFUROXIN [Concomitant]
     Active Substance: CEFUROXIME
     Indication: OTITIS MEDIA ACUTE
  5. HYDROCORTISONE. [Concomitant]
     Active Substance: HYDROCORTISONE
     Indication: OTITIS MEDIA ACUTE

REACTIONS (1)
  - Ventriculo-peritoneal shunt [Unknown]

NARRATIVE: CASE EVENT DATE: 20160118
